FAERS Safety Report 6638210-5 (Version None)
Quarter: 2010Q1

REPORT INFORMATION
  Report Type: 
  Country: None (occurrence: None)
  Receive Date: 20100312
  Receipt Date: 20100301
  Transmission Date: 20100710
  Serious: Yes (Hospitalization)
  Sender: FDA-Public Use
  Company Number: 238179K09USA

PATIENT
  Age: 48 Year
  Sex: Female
  Weight: 69 kg

DRUGS (5)
  1. REBIF [Suspect]
     Indication: MULTIPLE SCLEROSIS
     Dosage: 44 MCG, 3 IN 1 WEEKS, SUBCUTANEOUS
     Route: 058
     Dates: start: 20081001, end: 20090713
  2. TRAMADOL     (TRAMODOL) [Suspect]
     Indication: BACK PAIN
  3. HYDROCODONE         (HYDROCODONE) [Suspect]
     Indication: INTERVERTEBRAL DISC PROTRUSION
  4. NEBULIZER MEDICATIONS      (OTHER ANTI-ASTHMATICS FOR SYSTEMIC USE) [Concomitant]
  5. NEXIUM [Concomitant]

REACTIONS (8)
  - CRYING [None]
  - DECREASED APPETITE [None]
  - DISEASE PROGRESSION [None]
  - DISORIENTATION [None]
  - FALL [None]
  - LOSS OF CONSCIOUSNESS [None]
  - MULTIPLE SCLEROSIS [None]
  - WEIGHT DECREASED [None]
